FAERS Safety Report 17238084 (Version 1)
Quarter: 2020Q1

REPORT INFORMATION
  Report Type: Spontaneous
  Country: US (occurrence: US)
  Receive Date: 20200106
  Receipt Date: 20200106
  Transmission Date: 20200409
  Serious: Yes (Hospitalization)
  Sender: FDA-Public Use
  Company Number: US-PACIRA-201900241

PATIENT
  Sex: Male

DRUGS (3)
  1. EXPAREL [Suspect]
     Active Substance: BUPIVACAINE
     Indication: POSTOPERATIVE ANALGESIA
     Dates: start: 20190705, end: 20190705
  2. LIDOCAINE. [Suspect]
     Active Substance: LIDOCAINE
     Indication: POSTOPERATIVE ANALGESIA
     Dates: start: 20190705, end: 20190705
  3. EPINEPH [Suspect]
     Active Substance: EPINEPHRINE
     Indication: POSTOPERATIVE ANALGESIA
     Dates: start: 20190705, end: 20190705

REACTIONS (1)
  - Labelled drug-drug interaction medication error [Recovered/Resolved]

NARRATIVE: CASE EVENT DATE: 20190705
